FAERS Safety Report 11576153 (Version 13)
Quarter: 2017Q2

REPORT INFORMATION
  Report Type: Report from Study
  Country: IT (occurrence: IT)
  Receive Date: 20150930
  Receipt Date: 20170501
  Transmission Date: 20170829
  Serious: Yes (Life-Threatening, Hospitalization)
  Sender: FDA-Public Use
  Company Number: IT-ROCHE-1638720

PATIENT
  Age: 72 Year
  Sex: Female
  Weight: 70 kg

DRUGS (10)
  1. INSULINA [Concomitant]
     Active Substance: INSULIN NOS
     Indication: DIABETES MELLITUS
     Route: 030
     Dates: start: 1958
  2. DUOPLAVIN [Concomitant]
     Active Substance: ASPIRIN\CLOPIDOGREL
     Dosage: INDICATION REPORTED AS ADMITTING ANTI
     Route: 048
     Dates: start: 20150923, end: 20150924
  3. ALLOPURINOL. [Concomitant]
     Active Substance: ALLOPURINOL
     Dosage: INDICATION REPORTED AS URIC ACID
     Route: 048
     Dates: start: 20150924, end: 20150924
  4. HUMALOG [Concomitant]
     Active Substance: INSULIN LISPRO
     Indication: DIABETES MELLITUS
     Route: 030
     Dates: start: 20150923, end: 20150924
  5. BISOPROLOLO [Concomitant]
     Active Substance: BISOPROLOL FUMARATE
     Dosage: BETA BLOCKER
     Route: 048
     Dates: start: 20150923, end: 20150924
  6. OBINUTUZUMAB [Suspect]
     Active Substance: OBINUTUZUMAB
     Indication: CHRONIC LYMPHOCYTIC LEUKAEMIA
     Dosage: MOST RECENT DOSE OF OBINUTUZUMAB PRIOR TO MYOCARDIAL INFARCTION AND HEART ATTACK 23/SEP/2015 13:15?I
     Route: 042
     Dates: start: 20150923
  7. CLEXANE [Concomitant]
     Active Substance: ENOXAPARIN SODIUM
     Indication: PROPHYLAXIS
     Dosage: 6000 UNIT, 1 VIAL DAILY
     Route: 042
     Dates: start: 20150924, end: 20150924
  8. DEURSIL [Concomitant]
     Active Substance: URSODIOL
     Indication: PROPHYLAXIS
     Route: 048
     Dates: start: 20150923, end: 20150924
  9. TOTALIP [Concomitant]
     Active Substance: ATORVASTATIN
     Dosage: CHOLESTEROL
     Route: 048
     Dates: start: 20150923, end: 20150924
  10. LANZOPRAZOL [Concomitant]
     Active Substance: LANSOPRAZOLE
     Indication: PROPHYLAXIS
     Route: 048
     Dates: start: 20150923, end: 20150924

REACTIONS (2)
  - Myocardial infarction [Recovered/Resolved]
  - Myocardial infarction [Recovered/Resolved]

NARRATIVE: CASE EVENT DATE: 20150923
